FAERS Safety Report 6865995-5 (Version None)
Quarter: 2010Q3

REPORT INFORMATION
  Report Type: 
  Country: None (occurrence: None)
  Receive Date: 20100719
  Receipt Date: 20100622
  Transmission Date: 20110219
  Serious: Yes (Other)
  Sender: FDA-Public Use
  Company Number: WAES 1007DEU00051

PATIENT
  Age: 51 Year
  Sex: Male

DRUGS (1)
  1. CANCIDAS [Suspect]

REACTIONS (5)
  - ARTERIAL DISORDER [None]
  - ARTERIAL OCCLUSIVE DISEASE [None]
  - HYPOPERFUSION [None]
  - PLATELET COUNT DECREASED [None]
  - PROTHROMBIN TIME PROLONGED [None]
